FAERS Safety Report 6431146-4 (Version None)
Quarter: 2009Q4

REPORT INFORMATION
  Report Type: 
  Country: None (occurrence: None)
  Receive Date: 20091105
  Receipt Date: 20091105
  Transmission Date: 20100525
  Serious: Yes (Death)
  Sender: FDA-Public Use
  Company Number: None

PATIENT
  Age: 29 Year
  Sex: Male
  Weight: 112 kg

DRUGS (7)
  1. PROPOFOL [Suspect]
     Indication: STATUS EPILEPTICUS
     Dosage: 140-250 MCG/KG/MIN CONTINUOUS 041
     Dates: start: 20091030, end: 20091031
  2. PHENOBARBITAL [Concomitant]
  3. PHENYTOIN [Concomitant]
  4. KEPPRA [Concomitant]
  5. LORAZEPAM [Concomitant]
  6. MIDAZOLAM HCL [Concomitant]
  7. PENTOBARBITAL CAP [Concomitant]

REACTIONS (7)
  - ACIDOSIS [None]
  - BODY TEMPERATURE INCREASED [None]
  - CARDIO-RESPIRATORY ARREST [None]
  - CONVULSION [None]
  - HYPOTENSION [None]
  - OXYGEN SATURATION DECREASED [None]
  - TACHYCARDIA [None]
